FAERS Safety Report 9796193 (Version 1)
Quarter: 2014Q1

REPORT INFORMATION
  Report Type: Spontaneous
  Country: US (occurrence: US)
  Receive Date: 20140103
  Receipt Date: 20140103
  Transmission Date: 20141002
  Serious: Yes (Other)
  Sender: FDA-Public Use
  Company Number: US-PFIZER INC-2014000349

PATIENT
  Sex: Female

DRUGS (2)
  1. CELEBREX [Suspect]
     Indication: ARTHRITIS
     Dosage: 1 CAPSULE (DF), 1X/DAY
     Route: 048
  2. CELEBREX [Suspect]
     Dosage: 1 CAPSULE EVERY 8-12HOURS
     Route: 048

REACTIONS (3)
  - Intentional drug misuse [Unknown]
  - Back disorder [Unknown]
  - Drug ineffective [Unknown]
